FAERS Safety Report 7894222-5 (Version None)
Quarter: 2011Q4

REPORT INFORMATION
  Report Type: 
  Country: None (occurrence: None)
  Receive Date: 20111104
  Receipt Date: 20111021
  Transmission Date: 20120403
  Serious: Yes (Other)
  Sender: FDA-Public Use
  Company Number: PHHY2011DE94233

PATIENT
  Sex: Female

DRUGS (6)
  1. IBUPROFEN [Concomitant]
     Dosage: UNK UKN, UNK
  2. DEKRISTOL [Concomitant]
     Indication: VITAMIN D DEFICIENCY
     Dosage: UNK UKN, UNK
  3. PANTOPRAZOLE SODIUM [Concomitant]
     Indication: DYSPEPSIA
     Dosage: UNK UKN, UNK
  4. VITAMIN B-12 [Concomitant]
     Indication: VITAMIN B12 DEFICIENCY
     Dosage: UNK UKN, UNK
  5. ZOLEDRONOC ACID [Suspect]
     Indication: OSTEOPOROSIS
     Dosage: 5 MG, YEARLY
     Route: 042
     Dates: start: 20110809
  6. HOMEOPATHIC PREPARATION [Concomitant]

REACTIONS (12)
  - AREFLEXIA [None]
  - MUSCULOSKELETAL STIFFNESS [None]
  - FEELING ABNORMAL [None]
  - ARTHRALGIA [None]
  - HYPOAESTHESIA [None]
  - AMNESIA [None]
  - GAIT DISTURBANCE [None]
  - DYSKINESIA [None]
  - VENOUS INSUFFICIENCY [None]
  - INFLUENZA LIKE ILLNESS [None]
  - ERYTHEMA [None]
  - JOINT SWELLING [None]
